FAERS Safety Report 9571024 (Version 1)
Quarter: 2013Q3

REPORT INFORMATION
  Report Type: Spontaneous
  Country: US (occurrence: None)
  Receive Date: 20130927
  Receipt Date: 20130927
  Transmission Date: 20140515
  Serious: No
  Sender: FDA-Public Use
  Company Number: None

PATIENT
  Age: 57 Year
  Sex: Female
  Weight: 90 kg

DRUGS (4)
  1. OXALIPLATIN, 100 MG [Suspect]
     Route: 042
     Dates: start: 20130924, end: 20130924
  2. LEUCOVORIN [Concomitant]
  3. DEXTROSE [Concomitant]
  4. OXALIPLATIN [Concomitant]

REACTIONS (4)
  - Blood pressure increased [None]
  - Sneezing [None]
  - Nasal congestion [None]
  - Ocular hyperaemia [None]
